FAERS Safety Report 22645166 (Version 1)
Quarter: 2023Q2

REPORT INFORMATION
  Report Type: Spontaneous
  Country: US (occurrence: US)
  Receive Date: 20230627
  Receipt Date: 20230627
  Transmission Date: 20230721
  Serious: No
  Sender: FDA-Public Use
  Company Number: US-SA-SAC20230623000358

PATIENT
  Age: 18 Year
  Sex: Female

DRUGS (8)
  1. DUPIXENT [Suspect]
     Active Substance: DUPILUMAB
     Indication: Dermatitis atopic
     Dosage: 1 DF, QOW
     Route: 058
     Dates: start: 20230531
  2. BENADRYL [Concomitant]
     Active Substance: DIPHENHYDRAMINE HYDROCHLORIDE
  3. IBUPROFEN [Concomitant]
     Active Substance: IBUPROFEN
  4. VITAMINS NOS [Concomitant]
     Active Substance: VITAMINS
  5. UP4 PROBIOTIC + PREBIOTIC [Concomitant]
  6. COENZYME Q10 [Concomitant]
     Active Substance: DIETARY SUPPLEMENT\UBIDECARENONE
  7. DIGESTIVE ADVANTAGE [BACILLUS COAGULANS] [Concomitant]
  8. MAGNESIUM [Concomitant]
     Active Substance: MAGNESIUM

REACTIONS (4)
  - Eyelid margin crusting [Unknown]
  - Urticaria [Unknown]
  - Rash [Unknown]
  - Eczema [Unknown]

NARRATIVE: CASE EVENT DATE: 20230101
